FAERS Safety Report 12430935 (Version 1)
Quarter: 2016Q2

REPORT INFORMATION
  Report Type: Spontaneous
  Country: US (occurrence: US)
  Receive Date: 20160602
  Receipt Date: 20160602
  Transmission Date: 20160815
  Serious: No
  Sender: FDA-Public Use
  Company Number: US-ASTRAZENECA-2016SE57639

PATIENT
  Sex: Female
  Weight: 67.1 kg

DRUGS (5)
  1. ONDANESTERONE [Concomitant]
     Indication: ABDOMINAL DISCOMFORT
     Dosage: 4.0MG AS REQUIRED
     Route: 048
  2. NEXIUM [Suspect]
     Active Substance: ESOMEPRAZOLE MAGNESIUM
     Indication: SENSATION OF FOREIGN BODY
     Route: 048
  3. ESZOPICLONE. [Concomitant]
     Active Substance: ESZOPICLONE
     Indication: INSOMNIA
     Route: 048
  4. GABAPENTIN. [Concomitant]
     Active Substance: GABAPENTIN
     Indication: BALANCE DISORDER
     Route: 048
  5. NEXIUM [Suspect]
     Active Substance: ESOMEPRAZOLE MAGNESIUM
     Indication: SENSATION OF FOREIGN BODY
     Route: 048

REACTIONS (5)
  - Product use issue [Unknown]
  - Dysphagia [Unknown]
  - Off label use [Unknown]
  - Intentional product misuse [Unknown]
  - Fibromyalgia [Unknown]
